FAERS Safety Report 7888138-8 (Version None)
Quarter: 2011Q4

REPORT INFORMATION
  Report Type: 
  Country: None (occurrence: None)
  Receive Date: 20111103
  Receipt Date: 20111027
  Transmission Date: 20120403
  Serious: Yes (Hospitalization)
  Sender: FDA-Public Use
  Company Number: US-AMGEN-USASP2011042324

PATIENT
  Sex: Female
  Weight: 48.073 kg

DRUGS (8)
  1. LOVASTATIN [Concomitant]
     Dosage: 20 MG, UNK
  2. TIMOLOL MALEATE [Concomitant]
  3. FISH OIL [Concomitant]
  4. ASPIRIN [Concomitant]
     Dosage: 81 MG, UNK
  5. VITAMIN D [Concomitant]
     Dosage: 2000 IU, UNK
  6. SERTRALINE HYDROCHLORIDE [Concomitant]
     Dosage: 50 MG, UNK
  7. LUMIGAN [Concomitant]
  8. PROLIA [Suspect]
     Indication: OSTEOPOROSIS POSTMENOPAUSAL
     Dosage: 60 MG, ONE TIME DOSE
     Route: 058
     Dates: start: 20110909

REACTIONS (5)
  - NAUSEA [None]
  - RASH MACULAR [None]
  - RASH GENERALISED [None]
  - RASH PRURITIC [None]
  - DEHYDRATION [None]
